FAERS Safety Report 8116169-1 (Version None)
Quarter: 2012Q1

REPORT INFORMATION
  Report Type: 
  Country: None (occurrence: None)
  Receive Date: 20120206
  Receipt Date: 20120202
  Transmission Date: 20120608
  Serious: Yes (Other)
  Sender: FDA-Public Use
  Company Number: US-PFIZER INC-2011305930

PATIENT
  Sex: Male
  Weight: 95.238 kg

DRUGS (2)
  1. LIPITOR [Suspect]
     Indication: BLOOD CHOLESTEROL INCREASED
     Dosage: 20 MG, 1X/DAY
     Route: 048
  2. NORVASC [Concomitant]
     Dosage: UNK

REACTIONS (1)
  - CORONARY ARTERY OCCLUSION [None]
